FAERS Safety Report 20977408 (Version 5)
Quarter: 2022Q4

REPORT INFORMATION
  Report Type: Report from Study
  Country: DE (occurrence: None)
  Receive Date: 20220617
  Receipt Date: 20221102
  Transmission Date: 20230113
  Serious: Yes (Hospitalization)
  Sender: FDA-Public Use
  Company Number: DE-ROCHE-3115477

PATIENT
  Age: 36 Year
  Sex: Female
  Weight: 84 kg

DRUGS (9)
  1. ATEZOLIZUMAB [Suspect]
     Active Substance: ATEZOLIZUMAB
     Indication: Triple negative breast cancer
     Dosage: ON 14/JUN/2022, SHE RECEIVED MOST RECENT DOSE OF ATEZOLIZUMAB (IV) PRIOR TO AE
     Route: 041
     Dates: start: 20220118
  2. PACLITAXEL [Suspect]
     Active Substance: PACLITAXEL
     Indication: Triple negative breast cancer
     Dosage: ON 18/JAN/2022 SHE RECEIVED MOST RECENT DOSE OF PACLITAXEL PRIOR TO AE
     Route: 042
     Dates: start: 20220118
  3. CARBOPLATIN [Suspect]
     Active Substance: CARBOPLATIN
     Indication: Triple negative breast cancer
     Dosage: ON 05/APR/2022 SHE RECEIVED MOST RECENT DOSE OF CARBOPLATIN PRIOR TO AE
     Route: 042
     Dates: start: 20220118
  4. EPIRUBICIN [Suspect]
     Active Substance: EPIRUBICIN
     Indication: Triple negative breast cancer
     Dosage: ON 03/MAY/2022, 24/MAY/2022 AND 14/JUN/2022 SHE RECEIVED MOST RECENT DOSES OF EPIRUBICIN PRIOR TO AE
     Route: 042
     Dates: start: 20220412
  5. CYCLOPHOSPHAMIDE [Suspect]
     Active Substance: CYCLOPHOSPHAMIDE
     Indication: Triple negative breast cancer
     Dosage: DATE OF LAST DOSE PRIOR TO SAE: 03/MAY/2022, 24/MAY/2022, 14/JUN/2022
     Route: 042
     Dates: start: 20220412
  6. ERYTHROCYTES, CONCENTRATED [Concomitant]
     Dosage: 2 APPLICATIONS ONCE
     Dates: start: 20220513, end: 20220513
  7. ERYTHROCYTES, CONCENTRATED [Concomitant]
     Dosage: 2 APPLICATIONS ONCE
     Dates: start: 20220607, end: 20220607
  8. PROPRANOLOL [Concomitant]
     Active Substance: PROPRANOLOL HYDROCHLORIDE
     Dates: start: 20220603, end: 20220620
  9. AZITHROMYCIN [Concomitant]
     Active Substance: AZITHROMYCIN
     Dates: start: 20220620, end: 20220622

REACTIONS (4)
  - Febrile neutropenia [Recovered/Resolved]
  - Neutropenia [Unknown]
  - Hypothyroidism [Not Recovered/Not Resolved]
  - Hyperthyroidism [Recovered/Resolved]

NARRATIVE: CASE EVENT DATE: 20220511
